FAERS Safety Report 8250474-3 (Version None)
Quarter: 2012Q2

REPORT INFORMATION
  Report Type: 
  Country: None (occurrence: None)
  Receive Date: 20120402
  Receipt Date: 20120402
  Transmission Date: 20120825
  Serious: Yes (Other)
  Sender: FDA-Public Use
  Company Number: None

PATIENT
  Sex: Female

DRUGS (2)
  1. ABILIFY [Suspect]
     Indication: DEPRESSION
     Route: 048
     Dates: start: 20120222, end: 20120330
  2. ABILIFY [Suspect]
     Indication: ANXIETY
     Route: 048
     Dates: start: 20120222, end: 20120330

REACTIONS (2)
  - DYSKINESIA [None]
  - SALIVARY HYPERSECRETION [None]
